FAERS Safety Report 5778950-3 (Version None)
Quarter: 2008Q2

REPORT INFORMATION
  Report Type: 
  Country: None (occurrence: None)
  Receive Date: 20080617
  Receipt Date: 20080610
  Transmission Date: 20081010
  Serious: Yes (Death)
  Sender: FDA-Public Use
  Company Number: 163-21880-08051626

PATIENT
  Age: 61 Year
  Sex: Male

DRUGS (4)
  1. REVLIMID [Suspect]
     Indication: MYELODYSPLASTIC SYNDROME
     Dosage: 15 MG, 1 IN 1 D, ORAL
     Route: 048
     Dates: start: 20080429, end: 20080101
  2. POSACONAZOLE [Concomitant]
  3. VANCO (VANCOMYCIN HYDROCHLORIDE) [Concomitant]
  4. CASPOFUNGIN (CASPOFUNGIN) [Concomitant]

REACTIONS (8)
  - DISEASE PROGRESSION [None]
  - FUNGAL INFECTION [None]
  - MYELODYSPLASTIC SYNDROME [None]
  - NODULE [None]
  - PRURITUS [None]
  - PYREXIA [None]
  - RASH [None]
  - WHITE BLOOD CELL COUNT DECREASED [None]
